FAERS Safety Report 8903916 (Version 1)
Quarter: 2012Q4

REPORT INFORMATION
  Report Type: 
  Country: US (occurrence: US)
  Receive Date: 20121113
  Receipt Date: 20121113
  Transmission Date: 20130627
  Serious: No
  Sender: FDA-Public Use
  Company Number: US-AMGEN-USASP2012009719

PATIENT
  Age: 51 Year
  Sex: Male
  Weight: 76.19 kg

DRUGS (3)
  1. ENBREL [Suspect]
     Indication: PRODUCT USED FOR UNKNOWN INDICATION
     Dosage: 50 mg, qwk
  2. OXAPROZIN [Concomitant]
     Dosage: 600 mg, UNK
  3. OMEPRAZOLE [Concomitant]
     Dosage: 20 mg, UNK

REACTIONS (2)
  - Renal disorder [Unknown]
  - Calcification of muscle [Unknown]
